FAERS Safety Report 13667936 (Version 1)
Quarter: 2017Q2

REPORT INFORMATION
  Report Type: Spontaneous
  Country: US (occurrence: US)
  Receive Date: 20170619
  Receipt Date: 20170619
  Transmission Date: 20170830
  Serious: No
  Sender: FDA-Public Use
  Company Number: None

PATIENT
  Age: 53 Year
  Sex: Female
  Weight: 53.1 kg

DRUGS (6)
  1. PROMETRIUM [Concomitant]
     Active Substance: PROGESTERONE
  2. MAXALT [Concomitant]
     Active Substance: RIZATRIPTAN BENZOATE
  3. METHADONE [Concomitant]
     Active Substance: METHADONE HYDROCHLORIDE
  4. TRAZODONE [Concomitant]
     Active Substance: TRAZODONE HYDROCHLORIDE
  5. VIVELLE-DOT [Suspect]
     Active Substance: ESTRADIOL
     Indication: MENOPAUSE
     Dosage: ?          OTHER FREQUENCY:TWICE A WEEK;?
     Route: 062
     Dates: start: 20160426, end: 20160518
  6. CLONAZAPAM [Concomitant]
     Active Substance: CLONAZEPAM

REACTIONS (2)
  - Product substitution issue [None]
  - Migraine [None]

NARRATIVE: CASE EVENT DATE: 20160429
